FAERS Safety Report 22315721 (Version 1)
Quarter: 2023Q2

REPORT INFORMATION
  Report Type: Spontaneous
  Country: US (occurrence: US)
  Receive Date: 20230512
  Receipt Date: 20230512
  Transmission Date: 20230722
  Serious: No
  Sender: FDA-Public Use
  Company Number: US-CHEMOCENTRYX, INC.-2023USCCXI0983

PATIENT
  Age: 43 Year
  Sex: Female
  Weight: 122.45 kg

DRUGS (2)
  1. TAVNEOS [Suspect]
     Active Substance: AVACOPAN
     Indication: Granulomatosis with polyangiitis
     Dosage: 30 MILLIGRAM, QD
     Route: 048
     Dates: start: 20230306
  2. TAVNEOS [Suspect]
     Active Substance: AVACOPAN
     Dosage: 30 MG,BID (30 MG TWICE DAILY )
     Route: 048

REACTIONS (1)
  - Product dose omission issue [Recovered/Resolved]

NARRATIVE: CASE EVENT DATE: 20230301
